FAERS Safety Report 5479051-4 (Version None)
Quarter: 2007Q4

REPORT INFORMATION
  Report Type: 
  Country: None (occurrence: None)
  Receive Date: 20071006
  Receipt Date: 20070924
  Transmission Date: 20080405
  Serious: Yes (Other)
  Sender: FDA-Public Use
  Company Number: US-PFIZER INC-2007081058

PATIENT
  Sex: Female
  Weight: 86.2 kg

DRUGS (7)
  1. CHANTIX [Suspect]
     Indication: SMOKING CESSATION THERAPY
  2. AMARYL [Concomitant]
  3. LISINOPRIL [Concomitant]
  4. LIPITOR [Concomitant]
  5. METFORMIN HCL [Concomitant]
  6. GABAPENTIN [Concomitant]
  7. PULMICORT [Concomitant]

REACTIONS (2)
  - EMOTIONAL DISTRESS [None]
  - PANIC ATTACK [None]
